FAERS Safety Report 24791539 (Version 1)
Quarter: 2024Q4

REPORT INFORMATION
  Report Type: Spontaneous
  Country: US (occurrence: US)
  Receive Date: 20241231
  Receipt Date: 20241231
  Transmission Date: 20250115
  Serious: No
  Sender: ROCHE
  Company Number: US-ROCHE-10000165689

PATIENT
  Age: 71 Year
  Sex: Female

DRUGS (3)
  1. ACTEMRA [Suspect]
     Active Substance: TOCILIZUMAB
     Indication: Rheumatoid arthritis
     Dosage: 162 MG/0.9 M
     Route: 058
     Dates: start: 202401
  2. ACTEMRA [Suspect]
     Active Substance: TOCILIZUMAB
  3. TYMLOS [Concomitant]
     Active Substance: ABALOPARATIDE
     Indication: Senile osteoporosis
     Dosage: PREFILLED PEN

REACTIONS (1)
  - Fracture [Unknown]
